FAERS Safety Report 4315226-5 (Version None)
Quarter: 2004Q1

REPORT INFORMATION
  Report Type: 
  Country: None (occurrence: None)
  Receive Date: 20040311
  Receipt Date: 20040208
  Transmission Date: 20041129
  Serious: Yes (Hospitalization)
  Sender: FDA-Public Use
  Company Number: PHFR2004GB01025

PATIENT
  Age: 36 Year
  Sex: Female

DRUGS (6)
  1. CLOZARIL [Suspect]
     Indication: SCHIZOPHRENIA
     Dosage: 14X100MG + 4 X 25MG OVER 2WKS
     Route: 048
  2. TRIFLUOPERAZINE HCL [Concomitant]
     Indication: SCHIZOPHRENIA
     Route: 048
  3. PROCYCLIDINE [Concomitant]
     Route: 048
  4. CHLORPROMAZINE [Concomitant]
     Indication: SCHIZOPHRENIA
     Route: 048
  5. LITHIUM [Concomitant]
     Indication: MOOD SWINGS
  6. SERTRALINE HCL [Concomitant]
     Indication: DEPRESSION
     Route: 048

REACTIONS (2)
  - ACCIDENTAL EXPOSURE [None]
  - MEDICATION ERROR [None]
